FAERS Safety Report 4780051-8 (Version None)
Quarter: 2005Q3

REPORT INFORMATION
  Report Type: 
  Country: None (occurrence: None)
  Receive Date: 20050914
  Receipt Date: 20050411
  Transmission Date: 20060218
  Serious: Yes (Hospitalization)
  Sender: FDA-Public Use
  Company Number: 163-20785-05040309

PATIENT
  Age: 73 Year
  Sex: Male

DRUGS (1)
  1. THALOMID [Suspect]
     Indication: PSORIASIS
     Dosage: 50MG UP TO 300MG DAILY OR MAXIMUM TOLERATED DOSE., ORAL
     Route: 048
     Dates: start: 20050328

REACTIONS (6)
  - CARDIAC DISORDER [None]
  - CORONARY ARTERY OCCLUSION [None]
  - DYSPNOEA [None]
  - DYSPNOEA PAROXYSMAL NOCTURNAL [None]
  - PALPITATIONS [None]
  - STENT PLACEMENT [None]
